FAERS Safety Report 25297759 (Version 4)
Quarter: 2025Q3

REPORT INFORMATION
  Report Type: Spontaneous
  Country: EU (occurrence: EU)
  Receive Date: 20250511
  Receipt Date: 20250718
  Transmission Date: 20251021
  Serious: Yes (Death, Other)
  Sender: Haleon PLC
  Company Number: EU-SAKK-2022SA036611AA

PATIENT
  Age: 61 Year

DRUGS (276)
  1. ACETAMINOPHEN [Suspect]
     Active Substance: ACETAMINOPHEN
     Indication: Product used for unknown indication
  2. ACETAMINOPHEN [Suspect]
     Active Substance: ACETAMINOPHEN
  3. ACETAMINOPHEN [Suspect]
     Active Substance: ACETAMINOPHEN
  4. INDOMETHACIN SODIUM [Suspect]
     Active Substance: INDOMETHACIN SODIUM
     Indication: Product used for unknown indication
  5. NITROGLYCERIN [Suspect]
     Active Substance: NITROGLYCERIN
     Indication: Product used for unknown indication
  6. NITROGLYCERIN [Suspect]
     Active Substance: NITROGLYCERIN
  7. LEVOCETIRIZINE [Suspect]
     Active Substance: LEVOCETIRIZINE
     Indication: Product used for unknown indication
  8. ACECLOFENAC [Suspect]
     Active Substance: ACECLOFENAC
     Indication: Product used for unknown indication
  9. ACECLOFENAC [Suspect]
     Active Substance: ACECLOFENAC
  10. GINKGO [Suspect]
     Active Substance: GINKGO
     Indication: Product used for unknown indication
     Dosage: 120 MG
     Route: 048
  11. GINKGO [Suspect]
     Active Substance: GINKGO
  12. GINKGO [Suspect]
     Active Substance: GINKGO
  13. DILTIAZEM HYDROCHLORIDE [Suspect]
     Active Substance: DILTIAZEM HYDROCHLORIDE
     Indication: Product used for unknown indication
  14. DILTIAZEM HYDROCHLORIDE [Suspect]
     Active Substance: DILTIAZEM HYDROCHLORIDE
  15. DILTIAZEM HYDROCHLORIDE [Suspect]
     Active Substance: DILTIAZEM HYDROCHLORIDE
  16. ASPIRIN [Suspect]
     Active Substance: ASPIRIN
     Indication: Product used for unknown indication
  17. LEDIPASVIR [Suspect]
     Active Substance: LEDIPASVIR
     Indication: Product used for unknown indication
  18. LEDIPASVIR [Suspect]
     Active Substance: LEDIPASVIR
  19. LEDIPASVIR [Suspect]
     Active Substance: LEDIPASVIR
  20. LEDIPASVIR [Suspect]
     Active Substance: LEDIPASVIR
  21. PROPRANOLOL [Suspect]
     Active Substance: PROPRANOLOL HYDROCHLORIDE
     Indication: Product used for unknown indication
  22. PROPRANOLOL [Suspect]
     Active Substance: PROPRANOLOL HYDROCHLORIDE
  23. PROPRANOLOL [Suspect]
     Active Substance: PROPRANOLOL HYDROCHLORIDE
  24. ESCITALOPRAM [Suspect]
     Active Substance: ESCITALOPRAM OXALATE
     Indication: Product used for unknown indication
  25. ESCITALOPRAM [Suspect]
     Active Substance: ESCITALOPRAM OXALATE
     Route: 048
  26. ESCITALOPRAM [Suspect]
     Active Substance: ESCITALOPRAM OXALATE
  27. SIMVASTATIN [Suspect]
     Active Substance: SIMVASTATIN
     Indication: Product used for unknown indication
     Route: 048
  28. SIMVASTATIN [Suspect]
     Active Substance: SIMVASTATIN
  29. SIMVASTATIN [Suspect]
     Active Substance: SIMVASTATIN
     Route: 048
  30. SIMVASTATIN [Suspect]
     Active Substance: SIMVASTATIN
     Route: 048
  31. INDOMETHACIN [Suspect]
     Active Substance: INDOMETHACIN
     Indication: Product used for unknown indication
  32. INDOMETHACIN [Suspect]
     Active Substance: INDOMETHACIN
  33. INDOMETHACIN [Suspect]
     Active Substance: INDOMETHACIN
  34. ETANERCEPT [Suspect]
     Active Substance: ETANERCEPT
     Indication: Product used for unknown indication
  35. ETANERCEPT [Suspect]
     Active Substance: ETANERCEPT
  36. ETANERCEPT [Suspect]
     Active Substance: ETANERCEPT
  37. ETANERCEPT [Suspect]
     Active Substance: ETANERCEPT
  38. CHOLECALCIFEROL [Suspect]
     Active Substance: CHOLECALCIFEROL
     Indication: Product used for unknown indication
  39. CHOLECALCIFEROL [Suspect]
     Active Substance: CHOLECALCIFEROL
  40. CHOLECALCIFEROL [Suspect]
     Active Substance: CHOLECALCIFEROL
  41. CHOLECALCIFEROL [Suspect]
     Active Substance: CHOLECALCIFEROL
  42. CHOLECALCIFEROL [Suspect]
     Active Substance: CHOLECALCIFEROL
  43. CHOLECALCIFEROL [Suspect]
     Active Substance: CHOLECALCIFEROL
  44. PENTAZOCINE [Suspect]
     Active Substance: PENTAZOCINE
     Indication: Product used for unknown indication
  45. PENTAZOCINE [Suspect]
     Active Substance: PENTAZOCINE
     Route: 048
  46. AGOMELATINE [Suspect]
     Active Substance: AGOMELATINE
     Indication: Product used for unknown indication
  47. AGOMELATINE [Suspect]
     Active Substance: AGOMELATINE
  48. AGOMELATINE [Suspect]
     Active Substance: AGOMELATINE
  49. AGOMELATINE [Suspect]
     Active Substance: AGOMELATINE
  50. DOCETAXEL [Suspect]
     Active Substance: DOCETAXEL
     Indication: Product used for unknown indication
  51. DOCETAXEL [Suspect]
     Active Substance: DOCETAXEL
  52. HUMAN IMMUNOGLOBULIN G [Suspect]
     Active Substance: HUMAN IMMUNOGLOBULIN G
     Indication: Product used for unknown indication
  53. HUMAN IMMUNOGLOBULIN G [Suspect]
     Active Substance: HUMAN IMMUNOGLOBULIN G
     Dosage: 50 MG
  54. DONEPEZIL HYDROCHLORIDE [Suspect]
     Active Substance: DONEPEZIL HYDROCHLORIDE
     Indication: Product used for unknown indication
     Route: 048
  55. DONEPEZIL [Suspect]
     Active Substance: DONEPEZIL
     Indication: Product used for unknown indication
  56. DONEPEZIL [Suspect]
     Active Substance: DONEPEZIL
     Route: 048
  57. TOCILIZUMAB [Suspect]
     Active Substance: TOCILIZUMAB
     Indication: Product used for unknown indication
  58. TOCILIZUMAB [Suspect]
     Active Substance: TOCILIZUMAB
  59. TOCILIZUMAB [Suspect]
     Active Substance: TOCILIZUMAB
  60. PRAVASTATIN SODIUM [Suspect]
     Active Substance: PRAVASTATIN SODIUM
     Indication: Product used for unknown indication
  61. PRAVASTATIN SODIUM [Suspect]
     Active Substance: PRAVASTATIN SODIUM
  62. PRAVASTATIN SODIUM [Suspect]
     Active Substance: PRAVASTATIN SODIUM
  63. PRAVASTATIN SODIUM [Suspect]
     Active Substance: PRAVASTATIN SODIUM
  64. FLUVASTATIN SODIUM [Suspect]
     Active Substance: FLUVASTATIN SODIUM
     Indication: Product used for unknown indication
  65. FLUVASTATIN SODIUM [Suspect]
     Active Substance: FLUVASTATIN SODIUM
  66. FLUVASTATIN SODIUM [Suspect]
     Active Substance: FLUVASTATIN SODIUM
  67. NORFLOXACIN [Suspect]
     Active Substance: NORFLOXACIN
     Indication: Product used for unknown indication
  68. NORFLOXACIN [Suspect]
     Active Substance: NORFLOXACIN
  69. ALENDRONIC ACID [Suspect]
     Active Substance: ALENDRONIC ACID
     Indication: Product used for unknown indication
  70. ALENDRONIC ACID [Suspect]
     Active Substance: ALENDRONIC ACID
     Route: 048
  71. ALENDRONIC ACID [Suspect]
     Active Substance: ALENDRONIC ACID
  72. FLUVASTATIN [Suspect]
     Active Substance: FLUVASTATIN SODIUM
     Indication: Product used for unknown indication
  73. FLUVASTATIN [Suspect]
     Active Substance: FLUVASTATIN SODIUM
  74. MYCOPHENOLIC ACID [Suspect]
     Active Substance: MYCOPHENOLIC ACID
     Indication: Product used for unknown indication
  75. MYCOPHENOLIC ACID [Suspect]
     Active Substance: MYCOPHENOLIC ACID
  76. MYCOPHENOLIC ACID [Suspect]
     Active Substance: MYCOPHENOLIC ACID
  77. MYCOPHENOLIC ACID [Suspect]
     Active Substance: MYCOPHENOLIC ACID
  78. VENLAFAXINE HYDROCHLORIDE [Suspect]
     Active Substance: VENLAFAXINE HYDROCHLORIDE
     Indication: Product used for unknown indication
  79. VENLAFAXINE HYDROCHLORIDE [Suspect]
     Active Substance: VENLAFAXINE HYDROCHLORIDE
  80. VENLAFAXINE HYDROCHLORIDE [Suspect]
     Active Substance: VENLAFAXINE HYDROCHLORIDE
  81. VENLAFAXINE HYDROCHLORIDE [Suspect]
     Active Substance: VENLAFAXINE HYDROCHLORIDE
  82. ESIDREX [Suspect]
     Active Substance: HYDROCHLOROTHIAZIDE
     Indication: Product used for unknown indication
  83. ESIDREX [Suspect]
     Active Substance: HYDROCHLOROTHIAZIDE
  84. ATORVASTATIN CALCIUM [Suspect]
     Active Substance: ATORVASTATIN CALCIUM
     Indication: Product used for unknown indication
  85. ATORVASTATIN CALCIUM [Suspect]
     Active Substance: ATORVASTATIN CALCIUM
  86. ATORVASTATIN CALCIUM [Suspect]
     Active Substance: ATORVASTATIN CALCIUM
  87. ATORVASTATIN CALCIUM [Suspect]
     Active Substance: ATORVASTATIN CALCIUM
  88. NILOTINIB [Suspect]
     Active Substance: NILOTINIB
     Indication: Product used for unknown indication
  89. NILOTINIB [Suspect]
     Active Substance: NILOTINIB
  90. NILOTINIB [Suspect]
     Active Substance: NILOTINIB
  91. CODEINE PHOSPHATE [Suspect]
     Active Substance: CODEINE PHOSPHATE
     Indication: Product used for unknown indication
  92. CODEINE PHOSPHATE [Suspect]
     Active Substance: CODEINE PHOSPHATE
  93. CODEINE PHOSPHATE [Suspect]
     Active Substance: CODEINE PHOSPHATE
  94. NITROGLYCERIN [Suspect]
     Active Substance: NITROGLYCERIN
     Indication: Product used for unknown indication
  95. NITROGLYCERIN [Suspect]
     Active Substance: NITROGLYCERIN
  96. NITROGLYCERIN [Suspect]
     Active Substance: NITROGLYCERIN
  97. ENOXAPARIN SODIUM [Suspect]
     Active Substance: ENOXAPARIN SODIUM
     Indication: Product used for unknown indication
  98. ENOXAPARIN SODIUM [Suspect]
     Active Substance: ENOXAPARIN SODIUM
  99. ENOXAPARIN SODIUM [Suspect]
     Active Substance: ENOXAPARIN SODIUM
  100. ENOXAPARIN SODIUM [Suspect]
     Active Substance: ENOXAPARIN SODIUM
  101. ASPIRIN\PENTAZOCINE [Suspect]
     Active Substance: ASPIRIN\PENTAZOCINE
     Indication: Product used for unknown indication
  102. IBANDRONATE SODIUM [Suspect]
     Active Substance: IBANDRONATE SODIUM
     Indication: Product used for unknown indication
  103. IBANDRONATE SODIUM [Suspect]
     Active Substance: IBANDRONATE SODIUM
  104. IBANDRONATE SODIUM [Suspect]
     Active Substance: IBANDRONATE SODIUM
  105. PROPRANOLOL HYDROCHLORIDE [Suspect]
     Active Substance: PROPRANOLOL HYDROCHLORIDE
     Indication: Product used for unknown indication
  106. PRAVASTATIN [Suspect]
     Active Substance: PRAVASTATIN
     Indication: Product used for unknown indication
  107. PRAVASTATIN [Suspect]
     Active Substance: PRAVASTATIN
  108. PRAVASTATIN [Suspect]
     Active Substance: PRAVASTATIN
  109. ANASTROZOLE [Suspect]
     Active Substance: ANASTROZOLE
     Indication: Product used for unknown indication
  110. ANASTROZOLE [Suspect]
     Active Substance: ANASTROZOLE
  111. ANASTROZOLE [Suspect]
     Active Substance: ANASTROZOLE
  112. ANASTROZOLE [Suspect]
     Active Substance: ANASTROZOLE
  113. NORFLOXACIN [Suspect]
     Active Substance: NORFLOXACIN
     Indication: Product used for unknown indication
  114. NORFLOXACIN [Suspect]
     Active Substance: NORFLOXACIN
  115. NORFLOXACIN [Suspect]
     Active Substance: NORFLOXACIN
  116. NORFLOXACIN [Suspect]
     Active Substance: NORFLOXACIN
  117. ADALIMUMAB [Suspect]
     Active Substance: ADALIMUMAB
     Indication: Product used for unknown indication
     Route: 058
  118. ADALIMUMAB [Suspect]
     Active Substance: ADALIMUMAB
     Route: 058
  119. ADALIMUMAB [Suspect]
     Active Substance: ADALIMUMAB
  120. POTASSIUM IODIDE [Suspect]
     Active Substance: POTASSIUM IODIDE
     Indication: Product used for unknown indication
  121. POTASSIUM IODIDE [Suspect]
     Active Substance: POTASSIUM IODIDE
  122. POTASSIUM IODIDE [Suspect]
     Active Substance: POTASSIUM IODIDE
  123. POTASSIUM IODIDE [Suspect]
     Active Substance: POTASSIUM IODIDE
  124. POTASSIUM IODIDE [Suspect]
     Active Substance: POTASSIUM IODIDE
  125. POTASSIUM IODIDE [Suspect]
     Active Substance: POTASSIUM IODIDE
  126. HYDROMORPHONE HYDROCHLORIDE [Suspect]
     Active Substance: HYDROMORPHONE HYDROCHLORIDE
     Indication: Product used for unknown indication
  127. HYDROMORPHONE HYDROCHLORIDE [Suspect]
     Active Substance: HYDROMORPHONE HYDROCHLORIDE
  128. HUMAN IMMUNOGLOBULIN G [Suspect]
     Active Substance: HUMAN IMMUNOGLOBULIN G
     Indication: Product used for unknown indication
     Dosage: 50 MG
  129. HUMAN IMMUNOGLOBULIN G [Suspect]
     Active Substance: HUMAN IMMUNOGLOBULIN G
  130. INDOMETHACIN [Suspect]
     Active Substance: INDOMETHACIN
     Indication: Product used for unknown indication
  131. INDOMETHACIN [Suspect]
     Active Substance: INDOMETHACIN
  132. INDOMETHACIN [Suspect]
     Active Substance: INDOMETHACIN
  133. EXEMESTANE [Suspect]
     Active Substance: EXEMESTANE
     Indication: Product used for unknown indication
     Dosage: 35 G
  134. EXEMESTANE [Suspect]
     Active Substance: EXEMESTANE
  135. FENOFIBRATE [Suspect]
     Active Substance: FENOFIBRATE
     Indication: Product used for unknown indication
  136. FENOFIBRATE [Suspect]
     Active Substance: FENOFIBRATE
  137. GLUCOSAMINE [Suspect]
     Active Substance: GLUCOSAMINE
     Indication: Product used for unknown indication
  138. GLUCOSAMINE [Suspect]
     Active Substance: GLUCOSAMINE
  139. ESOMEPRAZOLE [Suspect]
     Active Substance: ESOMEPRAZOLE
     Indication: Product used for unknown indication
  140. ESOMEPRAZOLE [Suspect]
     Active Substance: ESOMEPRAZOLE
  141. ESOMEPRAZOLE [Suspect]
     Active Substance: ESOMEPRAZOLE
  142. IODINE [Suspect]
     Active Substance: IODINE
     Indication: Product used for unknown indication
  143. IODINE [Suspect]
     Active Substance: IODINE
  144. IODINE [Suspect]
     Active Substance: IODINE
  145. SERTRALINE HYDROCHLORIDE [Suspect]
     Active Substance: SERTRALINE HYDROCHLORIDE
     Indication: Product used for unknown indication
  146. SERTRALINE HYDROCHLORIDE [Suspect]
     Active Substance: SERTRALINE HYDROCHLORIDE
  147. SERTRALINE HYDROCHLORIDE [Suspect]
     Active Substance: SERTRALINE HYDROCHLORIDE
  148. RABIES IMMUNE GLOBULIN (HUMAN) [Suspect]
     Active Substance: RABIES IMMUNE GLOBULIN (HUMAN)
     Indication: Product used for unknown indication
  149. TELMISARTAN [Suspect]
     Active Substance: TELMISARTAN
     Indication: Product used for unknown indication
  150. TELMISARTAN [Suspect]
     Active Substance: TELMISARTAN
  151. TELMISARTAN [Suspect]
     Active Substance: TELMISARTAN
  152. FLUOXETINE HYDROCHLORIDE [Suspect]
     Active Substance: FLUOXETINE HYDROCHLORIDE
     Indication: Product used for unknown indication
  153. FLUOXETINE HYDROCHLORIDE [Suspect]
     Active Substance: FLUOXETINE HYDROCHLORIDE
  154. FLUOXETINE HYDROCHLORIDE [Suspect]
     Active Substance: FLUOXETINE HYDROCHLORIDE
  155. NITROGLYCERIN [Suspect]
     Active Substance: NITROGLYCERIN
     Indication: Product used for unknown indication
  156. NITROGLYCERIN [Suspect]
     Active Substance: NITROGLYCERIN
  157. PREGABALIN [Suspect]
     Active Substance: PREGABALIN
     Indication: Product used for unknown indication
  158. PREGABALIN [Suspect]
     Active Substance: PREGABALIN
     Dosage: 120 MG
  159. CILAZAPRIL ANHYDROUS [Suspect]
     Active Substance: CILAZAPRIL ANHYDROUS
     Indication: Product used for unknown indication
  160. CILAZAPRIL ANHYDROUS [Suspect]
     Active Substance: CILAZAPRIL ANHYDROUS
  161. CILAZAPRIL ANHYDROUS [Suspect]
     Active Substance: CILAZAPRIL ANHYDROUS
  162. CILAZAPRIL ANHYDROUS [Suspect]
     Active Substance: CILAZAPRIL ANHYDROUS
  163. TAMSULOSIN HYDROCHLORIDE [Suspect]
     Active Substance: TAMSULOSIN HYDROCHLORIDE
     Indication: Product used for unknown indication
  164. TAMSULOSIN HYDROCHLORIDE [Suspect]
     Active Substance: TAMSULOSIN HYDROCHLORIDE
  165. NIMESULIDE [Suspect]
     Active Substance: NIMESULIDE
     Indication: Product used for unknown indication
  166. NIMESULIDE [Suspect]
     Active Substance: NIMESULIDE
  167. NIMESULIDE [Suspect]
     Active Substance: NIMESULIDE
  168. NIMESULIDE [Suspect]
     Active Substance: NIMESULIDE
  169. DOMPERIDONE MALEATE [Suspect]
     Active Substance: DOMPERIDONE MALEATE
     Indication: Product used for unknown indication
  170. DOMPERIDONE MALEATE [Suspect]
     Active Substance: DOMPERIDONE MALEATE
  171. DOMPERIDONE MALEATE [Suspect]
     Active Substance: DOMPERIDONE MALEATE
  172. DOMPERIDONE MALEATE [Suspect]
     Active Substance: DOMPERIDONE MALEATE
  173. BISOPROLOL [Suspect]
     Active Substance: BISOPROLOL
     Indication: Product used for unknown indication
  174. BISOPROLOL [Suspect]
     Active Substance: BISOPROLOL
  175. BISOPROLOL [Suspect]
     Active Substance: BISOPROLOL
  176. IMATINIB [Suspect]
     Active Substance: IMATINIB
     Indication: Product used for unknown indication
  177. CODEINE [Suspect]
     Active Substance: CODEINE
     Indication: Product used for unknown indication
  178. CODEINE [Suspect]
     Active Substance: CODEINE
  179. CODEINE [Suspect]
     Active Substance: CODEINE
  180. CODEINE [Suspect]
     Active Substance: CODEINE
  181. EZETIMIBE [Suspect]
     Active Substance: EZETIMIBE
     Indication: Product used for unknown indication
     Route: 048
  182. EZETIMIBE [Suspect]
     Active Substance: EZETIMIBE
  183. EZETIMIBE [Suspect]
     Active Substance: EZETIMIBE
     Route: 048
  184. EZETIMIBE [Suspect]
     Active Substance: EZETIMIBE
     Route: 048
  185. GINKGO [Suspect]
     Active Substance: GINKGO
     Indication: Product used for unknown indication
  186. GINKGO [Suspect]
     Active Substance: GINKGO
  187. MIRTAZAPINE [Suspect]
     Active Substance: MIRTAZAPINE
     Indication: Product used for unknown indication
     Route: 048
  188. MIRTAZAPINE [Suspect]
     Active Substance: MIRTAZAPINE
     Route: 048
  189. MIRTAZAPINE [Suspect]
     Active Substance: MIRTAZAPINE
  190. MIRTAZAPINE [Suspect]
     Active Substance: MIRTAZAPINE
     Route: 048
  191. VENLAFAXINE HCL [Suspect]
     Active Substance: VENLAFAXINE HYDROCHLORIDE
     Indication: Product used for unknown indication
     Dosage: 100 MG
  192. VENLAFAXINE HCL [Suspect]
     Active Substance: VENLAFAXINE HYDROCHLORIDE
  193. PENTAZOCINE HYDROCHLORIDE [Suspect]
     Active Substance: PENTAZOCINE HYDROCHLORIDE
     Indication: Product used for unknown indication
  194. DOMPERIDONE [Suspect]
     Active Substance: DOMPERIDONE
     Indication: Product used for unknown indication
  195. DOMPERIDONE [Suspect]
     Active Substance: DOMPERIDONE
  196. VERAPAMIL HYDROCHLORIDE [Suspect]
     Active Substance: VERAPAMIL HYDROCHLORIDE
     Indication: Product used for unknown indication
  197. VERAPAMIL HYDROCHLORIDE [Suspect]
     Active Substance: VERAPAMIL HYDROCHLORIDE
  198. ESCHERICHIA COLI [Suspect]
     Active Substance: ESCHERICHIA COLI
     Indication: Product used for unknown indication
  199. ESCHERICHIA COLI [Suspect]
     Active Substance: ESCHERICHIA COLI
  200. ESCHERICHIA COLI [Suspect]
     Active Substance: ESCHERICHIA COLI
  201. ZOMETA [Suspect]
     Active Substance: ZOLEDRONIC ACID
     Indication: Product used for unknown indication
  202. ZOMETA [Suspect]
     Active Substance: ZOLEDRONIC ACID
  203. ZOMETA [Suspect]
     Active Substance: ZOLEDRONIC ACID
  204. ZOMETA [Suspect]
     Active Substance: ZOLEDRONIC ACID
  205. CHOLECALCIFEROL [Suspect]
     Active Substance: CHOLECALCIFEROL
     Indication: Product used for unknown indication
  206. CHOLECALCIFEROL [Suspect]
     Active Substance: CHOLECALCIFEROL
  207. CHOLECALCIFEROL [Suspect]
     Active Substance: CHOLECALCIFEROL
  208. CHOLECALCIFEROL [Suspect]
     Active Substance: CHOLECALCIFEROL
  209. HYDROMORPHONE HYDROCHLORIDE [Suspect]
     Active Substance: HYDROMORPHONE HYDROCHLORIDE
     Indication: Product used for unknown indication
     Route: 048
  210. HYDROMORPHONE HYDROCHLORIDE [Suspect]
     Active Substance: HYDROMORPHONE HYDROCHLORIDE
     Route: 048
  211. HYDROMORPHONE HYDROCHLORIDE [Suspect]
     Active Substance: HYDROMORPHONE HYDROCHLORIDE
     Route: 048
  212. CELECOXIB [Suspect]
     Active Substance: CELECOXIB
     Indication: Product used for unknown indication
  213. CELECOXIB [Suspect]
     Active Substance: CELECOXIB
  214. CELECOXIB [Suspect]
     Active Substance: CELECOXIB
  215. PENTOXIFYLLINE [Suspect]
     Active Substance: PENTOXIFYLLINE
     Indication: Product used for unknown indication
  216. PENTOXIFYLLINE [Suspect]
     Active Substance: PENTOXIFYLLINE
  217. PENTOXIFYLLINE [Suspect]
     Active Substance: PENTOXIFYLLINE
  218. PENTOXIFYLLINE [Suspect]
     Active Substance: PENTOXIFYLLINE
  219. SERTRALINE [Suspect]
     Active Substance: SERTRALINE HYDROCHLORIDE
     Indication: Product used for unknown indication
  220. SERTRALINE [Suspect]
     Active Substance: SERTRALINE HYDROCHLORIDE
  221. SERTRALINE [Suspect]
     Active Substance: SERTRALINE HYDROCHLORIDE
  222. ASPIRIN [Suspect]
     Active Substance: ASPIRIN
     Indication: Product used for unknown indication
  223. ASPIRIN [Suspect]
     Active Substance: ASPIRIN
  224. ASPIRIN [Suspect]
     Active Substance: ASPIRIN
  225. HYDROMORPHONE [Suspect]
     Active Substance: HYDROMORPHONE
     Indication: Product used for unknown indication
  226. SOFOSBUVIR [Suspect]
     Active Substance: SOFOSBUVIR
     Indication: Product used for unknown indication
  227. SOFOSBUVIR [Suspect]
     Active Substance: SOFOSBUVIR
  228. SOFOSBUVIR [Suspect]
     Active Substance: SOFOSBUVIR
  229. SOFOSBUVIR [Suspect]
     Active Substance: SOFOSBUVIR
  230. TRAMADOL HYDROCHLORIDE [Suspect]
     Active Substance: TRAMADOL HYDROCHLORIDE
     Indication: Product used for unknown indication
  231. TRAMADOL HYDROCHLORIDE [Suspect]
     Active Substance: TRAMADOL HYDROCHLORIDE
  232. TRAMADOL HYDROCHLORIDE [Suspect]
     Active Substance: TRAMADOL HYDROCHLORIDE
     Route: 062
  233. VORTIOXETINE [Suspect]
     Active Substance: VORTIOXETINE
     Indication: Product used for unknown indication
  234. VORTIOXETINE [Suspect]
     Active Substance: VORTIOXETINE
  235. VORTIOXETINE [Suspect]
     Active Substance: VORTIOXETINE
  236. VORTIOXETINE [Suspect]
     Active Substance: VORTIOXETINE
  237. BISOPROLOL FUMARATE [Suspect]
     Active Substance: BISOPROLOL FUMARATE
     Indication: Product used for unknown indication
  238. BISOPROLOL FUMARATE [Suspect]
     Active Substance: BISOPROLOL FUMARATE
  239. BRINZOLAMIDE [Suspect]
     Active Substance: BRINZOLAMIDE
     Indication: Product used for unknown indication
  240. BRINZOLAMIDE [Suspect]
     Active Substance: BRINZOLAMIDE
     Dosage: 100 MG
  241. BRINZOLAMIDE [Suspect]
     Active Substance: BRINZOLAMIDE
  242. ALISKIREN HEMIFUMARATE [Suspect]
     Active Substance: ALISKIREN HEMIFUMARATE
     Indication: Product used for unknown indication
  243. ALISKIREN HEMIFUMARATE [Suspect]
     Active Substance: ALISKIREN HEMIFUMARATE
  244. ALISKIREN HEMIFUMARATE [Suspect]
     Active Substance: ALISKIREN HEMIFUMARATE
  245. CODEINE SULFATE [Suspect]
     Active Substance: CODEINE SULFATE
     Indication: Product used for unknown indication
  246. CODEINE SULFATE [Suspect]
     Active Substance: CODEINE SULFATE
  247. CODEINE SULFATE [Suspect]
     Active Substance: CODEINE SULFATE
  248. SODIUM PICOSULFATE [Suspect]
     Active Substance: SODIUM PICOSULFATE
     Indication: Product used for unknown indication
  249. SODIUM PICOSULFATE [Suspect]
     Active Substance: SODIUM PICOSULFATE
     Route: 062
  250. PITAVASTATIN [Suspect]
     Active Substance: PITAVASTATIN
     Indication: Product used for unknown indication
  251. PITAVASTATIN [Suspect]
     Active Substance: PITAVASTATIN
  252. PITAVASTATIN [Suspect]
     Active Substance: PITAVASTATIN
  253. PITAVASTATIN [Suspect]
     Active Substance: PITAVASTATIN
  254. HUMAN RABIES VIRUS IMMUNE GLOBULIN [Suspect]
     Active Substance: HUMAN RABIES VIRUS IMMUNE GLOBULIN
     Indication: Product used for unknown indication
  255. HUMAN RABIES VIRUS IMMUNE GLOBULIN [Suspect]
     Active Substance: HUMAN RABIES VIRUS IMMUNE GLOBULIN
  256. HUMAN RABIES VIRUS IMMUNE GLOBULIN [Suspect]
     Active Substance: HUMAN RABIES VIRUS IMMUNE GLOBULIN
  257. LETROZOLE [Suspect]
     Active Substance: LETROZOLE
     Indication: Product used for unknown indication
  258. LETROZOLE [Suspect]
     Active Substance: LETROZOLE
  259. LETROZOLE [Suspect]
     Active Substance: LETROZOLE
  260. IODINE [Suspect]
     Active Substance: IODINE
     Indication: Product used for unknown indication
  261. DUTASTERIDE [Suspect]
     Active Substance: DUTASTERIDE
     Indication: Product used for unknown indication
  262. DUTASTERIDE [Suspect]
     Active Substance: DUTASTERIDE
  263. DUTASTERIDE [Suspect]
     Active Substance: DUTASTERIDE
  264. MYCOPHENOLATE MOFETIL [Suspect]
     Active Substance: MYCOPHENOLATE MOFETIL
     Indication: Product used for unknown indication
  265. MYCOPHENOLATE MOFETIL [Suspect]
     Active Substance: MYCOPHENOLATE MOFETIL
  266. IMATINIB MESYLATE [Suspect]
     Active Substance: IMATINIB MESYLATE
     Indication: Product used for unknown indication
  267. ASPIRIN [Suspect]
     Active Substance: ASPIRIN
     Indication: Product used for unknown indication
  268. LEVOCETIRIZINE DIHYDROCHLORIDE [Suspect]
     Active Substance: LEVOCETIRIZINE DIHYDROCHLORIDE
     Indication: Product used for unknown indication
     Dosage: 5 MG
  269. BUPRENORPHINE [Interacting]
     Active Substance: BUPRENORPHINE
     Indication: Product used for unknown indication
  270. BUPRENORPHINE [Interacting]
     Active Substance: BUPRENORPHINE
     Dosage: 35 G (Q1HR)
     Route: 062
  271. BUPRENORPHINE [Interacting]
     Active Substance: BUPRENORPHINE
  272. ESCITALOPRAM OXALATE [Suspect]
     Active Substance: ESCITALOPRAM OXALATE
     Indication: Product used for unknown indication
  273. ESCITALOPRAM OXALATE [Suspect]
     Active Substance: ESCITALOPRAM OXALATE
  274. ESCITALOPRAM OXALATE [Suspect]
     Active Substance: ESCITALOPRAM OXALATE
     Route: 048
  275. RIBAVIRIN [Suspect]
     Active Substance: RIBAVIRIN
     Indication: Product used for unknown indication
  276. RIBAVIRIN [Suspect]
     Active Substance: RIBAVIRIN

REACTIONS (46)
  - Cardio-respiratory arrest [Fatal]
  - Head discomfort [Fatal]
  - Somnolence [Fatal]
  - Dyspnoea [Fatal]
  - Fall [Fatal]
  - Fatigue [Fatal]
  - Ascites [Fatal]
  - Pruritus [Fatal]
  - Photophobia [Fatal]
  - Arthralgia [Fatal]
  - Insomnia [Fatal]
  - Ocular discomfort [Fatal]
  - Eye pain [Fatal]
  - Haematuria [Fatal]
  - Generalised oedema [Fatal]
  - Amaurosis fugax [Fatal]
  - Myalgia [Fatal]
  - Coma [Fatal]
  - Chills [Fatal]
  - Dizziness [Fatal]
  - Abdominal pain upper [Fatal]
  - Headache [Fatal]
  - Tachycardia [Fatal]
  - Urinary tract disorder [Fatal]
  - Nausea [Fatal]
  - Altered state of consciousness [Fatal]
  - Vision blurred [Fatal]
  - Abdominal pain [Fatal]
  - Drug interaction [Fatal]
  - Asthenia [Fatal]
  - Blindness [Fatal]
  - Sepsis [Fatal]
  - Presyncope [Fatal]
  - Tinnitus [Fatal]
  - Diplopia [Fatal]
  - Malaise [Fatal]
  - Syncope [Fatal]
  - Haematemesis [Fatal]
  - Vomiting [Fatal]
  - Cough [Fatal]
  - Blood pressure increased [Fatal]
  - Haemorrhagic stroke [Fatal]
  - Pyrexia [Fatal]
  - Diarrhoea [Fatal]
  - Decreased appetite [Fatal]
  - Off label use [Unknown]
